FAERS Safety Report 7511769-1 (Version None)
Quarter: 2011Q2

REPORT INFORMATION
  Report Type: 
  Country: None (occurrence: None)
  Receive Date: 20110531
  Receipt Date: 20110520
  Transmission Date: 20111010
  Serious: Yes (Hospitalization)
  Sender: FDA-Public Use
  Company Number: FR-JNJFOC-20110511904

PATIENT
  Sex: Female

DRUGS (3)
  1. SURGAM [Suspect]
     Indication: INFLAMMATION
     Route: 048
     Dates: start: 20110401, end: 20110402
  2. METRONIDAZOLE [Suspect]
     Indication: PROPHYLAXIS
     Route: 048
     Dates: start: 20110401, end: 20110402
  3. TRAMADOL HCL [Suspect]
     Indication: TOOTHACHE
     Route: 048
     Dates: start: 20110401, end: 20110402

REACTIONS (3)
  - DRUG INTOLERANCE [None]
  - VOMITING [None]
  - ABDOMINAL PAIN [None]
